FAERS Safety Report 5670713-2 (Version None)
Quarter: 2008Q2

REPORT INFORMATION
  Report Type: 
  Country: None (occurrence: None)
  Receive Date: 20080305
  Receipt Date: 20070713
  Transmission Date: 20081010
  Serious: Yes (Other)
  Sender: FDA-Public Use
  Company Number: BDI-009829

PATIENT
  Age: 65 Year
  Sex: Female

DRUGS (1)
  1. ISOVUE-300 [Suspect]
     Indication: INTRAVENOUS CATHETER MANAGEMENT
     Dosage: 20ML ONCE INTRAVENOUS
     Route: 042
     Dates: start: 20070711, end: 20070711

REACTIONS (2)
  - DYSPHAGIA [None]
  - DYSPNOEA [None]
